FAERS Safety Report 9553637 (Version 2)
Quarter: 2013Q3

REPORT INFORMATION
  Report Type: Spontaneous
  Country: DE (occurrence: DE)
  Receive Date: 20130925
  Receipt Date: 20130925
  Transmission Date: 20140515
  Serious: Yes (Death)
  Sender: FDA-Public Use
  Company Number: DE-PFIZER INC-2013158146

PATIENT
  Age: 63 Year
  Sex: Female

DRUGS (1)
  1. EXEMESTAN PFIZER [Suspect]
     Dosage: UNK

REACTIONS (2)
  - Death [Fatal]
  - Drug intolerance [Unknown]
